FAERS Safety Report 17100790 (Version 1)
Quarter: 2019Q4

REPORT INFORMATION
  Report Type: Spontaneous
  Country: US (occurrence: US)
  Receive Date: 20191202
  Receipt Date: 20191202
  Transmission Date: 20200122
  Serious: Yes (Other)
  Sender: FDA-Public Use
  Company Number: US-SA-2018SA047114

PATIENT
  Age: 36 Year
  Sex: Female
  Weight: 79 kg

DRUGS (11)
  1. TAXOTERE [Suspect]
     Active Substance: DOCETAXEL
     Dosage: 162 MG, Q3W
     Route: 042
     Dates: start: 20140701, end: 20140701
  2. FOLIC ACID. [Concomitant]
     Active Substance: FOLIC ACID
     Dosage: 1 DF, QD
     Route: 048
     Dates: start: 20170124
  3. HUMALOG [Concomitant]
     Active Substance: INSULIN LISPRO
     Dosage: 15 UNITS 2X A DAY
     Route: 058
  4. METFORMIN HYDROCHLORIDE. [Concomitant]
     Active Substance: METFORMIN HYDROCHLORIDE
     Dosage: 1 DF, BID
     Route: 048
     Dates: start: 20161202
  5. HERCEPTIN [Concomitant]
     Active Substance: TRASTUZUMAB
     Dosage: UNK
     Dates: start: 20140701, end: 20140701
  6. FLUTICASONE PROPIONATE. [Concomitant]
     Active Substance: FLUTICASONE PROPIONATE
     Dosage: USE 1 SPRAY INTO EACH NOSTRIL TWICE DAILY
     Route: 045
     Dates: start: 20170103
  7. LORATADINE. [Concomitant]
     Active Substance: LORATADINE
     Dosage: 1 DF, PRN
     Route: 048
  8. PROVENTIL HFA [SALBUTAMOL] [Concomitant]
     Dosage: INHALE 2 PUFFS EVERY 4 HOURS PRN
     Route: 045
     Dates: start: 20170124
  9. TAXOTERE [Suspect]
     Active Substance: DOCETAXEL
     Indication: BREAST CANCER FEMALE
     Dosage: 118 MG, Q3W
     Route: 042
     Dates: start: 20140109, end: 20140109
  10. HERCEPTIN [Concomitant]
     Active Substance: TRASTUZUMAB
     Indication: BREAST CANCER FEMALE
     Dosage: UNK
     Dates: start: 20140109, end: 20140109
  11. MONTELUKAST SODIUM. [Concomitant]
     Active Substance: MONTELUKAST SODIUM
     Dosage: 1 DF, HS
     Route: 048
     Dates: start: 20170124

REACTIONS (2)
  - Alopecia [Recovering/Resolving]
  - Psychological trauma [Unknown]

NARRATIVE: CASE EVENT DATE: 201406
